FAERS Safety Report 12512620 (Version 1)
Quarter: 2016Q2

REPORT INFORMATION
  Report Type: Spontaneous
  Country: US (occurrence: US)
  Receive Date: 20160630
  Receipt Date: 20160630
  Transmission Date: 20160815
  Serious: Yes (Hospitalization)
  Sender: FDA-Public Use
  Company Number: US-JNJFOC-20160313331

PATIENT
  Age: 52 Year
  Sex: Female
  Weight: 146 kg

DRUGS (5)
  1. XARELTO [Suspect]
     Active Substance: RIVAROXABAN
     Indication: DEEP VEIN THROMBOSIS
     Route: 048
     Dates: start: 201403, end: 20140411
  2. XARELTO [Suspect]
     Active Substance: RIVAROXABAN
     Indication: PULMONARY EMBOLISM
     Dosage: THE PATEINT WAS GIVEN 15MG BID FOR 21 DAYS AND THEN WAS ON 20MG
     Route: 048
     Dates: start: 20140313, end: 201403
  3. XARELTO [Suspect]
     Active Substance: RIVAROXABAN
     Indication: PULMONARY EMBOLISM
     Route: 048
     Dates: start: 201403, end: 20140411
  4. XARELTO [Suspect]
     Active Substance: RIVAROXABAN
     Indication: DEEP VEIN THROMBOSIS
     Dosage: THE PATEINT WAS GIVEN 15MG BID FOR 21 DAYS AND THEN WAS ON 20MG
     Route: 048
     Dates: start: 20140313, end: 201403
  5. ASPIRIN. [Suspect]
     Active Substance: ASPIRIN
     Indication: PRODUCT USED FOR UNKNOWN INDICATION
     Route: 065

REACTIONS (1)
  - Postmenopausal haemorrhage [Recovered/Resolved]

NARRATIVE: CASE EVENT DATE: 201403
